FAERS Safety Report 19259966 (Version 1)
Quarter: 2021Q2

REPORT INFORMATION
  Report Type: Spontaneous
  Country: CN (occurrence: CN)
  Receive Date: 20210514
  Receipt Date: 20210514
  Transmission Date: 20210717
  Serious: Yes (Hospitalization)
  Sender: FDA-Public Use
  Company Number: CN-PFIZER INC-2021504212

PATIENT
  Age: 13 Year
  Sex: Male
  Weight: 52 kg

DRUGS (6)
  1. CYTOSAR [Suspect]
     Active Substance: CYTARABINE
     Indication: ACUTE MYELOID LEUKAEMIA
     Dosage: 4.2 G, 2X/DAY
     Route: 042
     Dates: start: 20210210, end: 20210212
  2. SODIUM CHLORIDE. [Concomitant]
     Active Substance: SODIUM CHLORIDE
     Indication: ACUTE MYELOID LEUKAEMIA
     Dosage: 375 ML, 1X/DAY
     Route: 042
     Dates: start: 20210210, end: 20210214
  3. DEXAMETHASONE. [Suspect]
     Active Substance: DEXAMETHASONE
     Indication: PROPHYLAXIS
     Dosage: 5 MG
     Route: 037
     Dates: start: 20210210
  4. METHOTREXATE SODIUM. [Suspect]
     Active Substance: METHOTREXATE SODIUM
     Indication: PROPHYLAXIS
     Dosage: 12.5 MG
     Route: 037
     Dates: start: 20210210
  5. HOMOHARRINGTONINE [Suspect]
     Active Substance: OMACETAXINE MEPESUCCINATE
     Indication: ACUTE MYELOID LEUKAEMIA
     Dosage: 5.6 MG, 1X/DAY
     Route: 042
     Dates: start: 20210210, end: 20210214
  6. CYTOSAR [Suspect]
     Active Substance: CYTARABINE
     Indication: PROPHYLAXIS
     Dosage: 35 MG
     Route: 037
     Dates: start: 20210210

REACTIONS (6)
  - Heart rate increased [Recovered/Resolved]
  - Myelosuppression [Recovering/Resolving]
  - Pallor [Unknown]
  - Conjunctival pallor [Unknown]
  - Pyrexia [Recovered/Resolved]
  - Mucosal disorder [Unknown]

NARRATIVE: CASE EVENT DATE: 20210212
